FAERS Safety Report 10066236 (Version 2)
Quarter: 2015Q2

REPORT INFORMATION
  Report Type: Spontaneous
  Country: US (occurrence: US)
  Receive Date: 20140408
  Receipt Date: 20150408
  Transmission Date: 20150821
  Serious: Yes (Death, Hospitalization, Other)
  Sender: FDA-Public Use
  Company Number: US-MERCK-1404USA004126

PATIENT
  Sex: Male

DRUGS (2)
  1. JANUVIA [Suspect]
     Active Substance: SITAGLIPTIN PHOSPHATE
     Dosage: 25 MG, BID
     Route: 048
     Dates: start: 20100412
  2. JANUVIA [Suspect]
     Active Substance: SITAGLIPTIN PHOSPHATE
     Dosage: 100 MG, QD
     Route: 048
     Dates: start: 20090701, end: 20121112

REACTIONS (9)
  - Polyp [Unknown]
  - Arthritis [Unknown]
  - Back pain [Unknown]
  - Pancreatitis [Unknown]
  - Irritable bowel syndrome [Unknown]
  - Neck pain [Unknown]
  - Constipation [Unknown]
  - Pancreatic carcinoma [Fatal]
  - Lung neoplasm malignant [Unknown]

NARRATIVE: CASE EVENT DATE: 20091219
